FAERS Safety Report 9733979 (Version 1)
Quarter: 2013Q4

REPORT INFORMATION
  Report Type: Spontaneous
  Country: TW (occurrence: TW)
  Receive Date: 20131205
  Receipt Date: 20131205
  Transmission Date: 20140711
  Serious: Yes (Other)
  Sender: FDA-Public Use
  Company Number: PHHY2013TW136529

PATIENT
  Age: 82 Year
  Sex: Male

DRUGS (3)
  1. TRIAMCINOLONE [Suspect]
     Dosage: 40 MG, UNK
  2. BEVACIZUMAB [Suspect]
     Indication: AGE-RELATED MACULAR DEGENERATION
  3. AVASTIN [Suspect]

REACTIONS (3)
  - Choroidal infarction [Unknown]
  - Visual impairment [Recovering/Resolving]
  - Macular oedema [Recovered/Resolved]
